FAERS Safety Report 18236104 (Version 1)
Quarter: 2020Q3

REPORT INFORMATION
  Report Type: Spontaneous
  Country: BR (occurrence: BR)
  Receive Date: 20200906
  Receipt Date: 20200906
  Transmission Date: 20201103
  Serious: Yes (Other)
  Sender: FDA-Public Use
  Company Number: NVSC2020BR240999

PATIENT
  Age: 68 Year
  Sex: Female
  Weight: 51 kg

DRUGS (1)
  1. ONDANSETRON HYDROCHLORIDE. [Suspect]
     Active Substance: ONDANSETRON HYDROCHLORIDE
     Indication: NAUSEA
     Dosage: 8 MG, Q8H
     Route: 042
     Dates: start: 20200824, end: 20200825

REACTIONS (2)
  - Tongue oedema [Recovered/Resolved]
  - Intestinal obstruction [Unknown]

NARRATIVE: CASE EVENT DATE: 20200825
